FAERS Safety Report 18366029 (Version 1)
Quarter: 2020Q4

REPORT INFORMATION
  Report Type: Spontaneous
  Country: DE (occurrence: DE)
  Receive Date: 20201009
  Receipt Date: 20201009
  Transmission Date: 20210114
  Serious: Yes (Disabling)
  Sender: FDA-Public Use
  Company Number: DE-EMD SERONO-E2B_90080632

PATIENT
  Age: 34 Year
  Sex: Female
  Weight: 70 kg

DRUGS (3)
  1. IBUPROFEN. [Concomitant]
     Active Substance: IBUPROFEN
     Indication: PRODUCT USED FOR UNKNOWN INDICATION
     Route: 048
     Dates: start: 2004
  2. REBIF [Suspect]
     Active Substance: INTERFERON BETA-1A
     Indication: MULTIPLE SCLEROSIS
     Route: 058
     Dates: start: 2004
  3. ALKOHOL [Suspect]
     Active Substance: ALCOHOL
     Indication: MULTIPLE SCLEROSIS
     Route: 003
     Dates: start: 2004

REACTIONS (6)
  - Pain [Unknown]
  - Application site calcification [Unknown]
  - Dermatitis [Unknown]
  - Skin reaction [Unknown]
  - Movement disorder [Unknown]
  - Ulcer [Unknown]
